FAERS Safety Report 5708457-0 (Version None)
Quarter: 2008Q2

REPORT INFORMATION
  Report Type: 
  Country: None (occurrence: None)
  Receive Date: 20080414
  Receipt Date: 20080401
  Transmission Date: 20081010
  Serious: No
  Sender: FDA-Public Use
  Company Number: 000391

PATIENT
  Age: 57 Year
  Sex: Male

DRUGS (3)
  1. CLOPIDOGREL [Suspect]
     Indication: INTERMITTENT CLAUDICATION
     Dosage: 100 MG, BID ORAL
     Route: 048
     Dates: start: 20070425, end: 20070619
  2. ACETYLSALICYLIC ACID SRT [Concomitant]
  3. CLOPIDOGREL [Suspect]

REACTIONS (13)
  - ALOPECIA [None]
  - BLOOD DISORDER [None]
  - CHEST PAIN [None]
  - CHILLS [None]
  - DYSPHONIA [None]
  - FLATULENCE [None]
  - GOUT [None]
  - MALAISE [None]
  - PALPITATIONS [None]
  - PRURITUS [None]
  - PSORIASIS [None]
  - RASH [None]
  - SLEEP DISORDER [None]
